FAERS Safety Report 24550599 (Version 1)
Quarter: 2024Q4

REPORT INFORMATION
  Report Type: Spontaneous
  Country: IT (occurrence: IT)
  Receive Date: 20241025
  Receipt Date: 20241025
  Transmission Date: 20250115
  Serious: No
  Sender: JAZZ
  Company Number: IT-JAZZ PHARMACEUTICALS-2024-IT-003113

PATIENT
  Age: 35 Year
  Sex: Male

DRUGS (1)
  1. DEFITELIO [Suspect]
     Active Substance: DEFIBROTIDE SODIUM
     Indication: Thrombotic thrombocytopenic purpura
     Dosage: 40 MILLIGRAM/KILOGRAM, QD
     Route: 048

REACTIONS (2)
  - Therapy partial responder [Unknown]
  - Off label use [Unknown]
